FAERS Safety Report 11137902 (Version 1)
Quarter: 2015Q2

REPORT INFORMATION
  Report Type: Spontaneous
  Country: US (occurrence: US)
  Receive Date: 20150526
  Receipt Date: 20150526
  Transmission Date: 20150821
  Serious: No
  Sender: FDA-Public Use
  Company Number: US-MALLINCKRODT-T201404627

PATIENT
  Age: 28 Year
  Sex: Female

DRUGS (2)
  1. H.P. ACTHAR [Suspect]
     Active Substance: CORTICOTROPIN
     Indication: SYSTEMIC LUPUS ERYTHEMATOSUS
     Dosage: 80 UNITS, TWICE WKLY
     Route: 065
     Dates: start: 20141219
  2. H.P. ACTHAR [Suspect]
     Active Substance: CORTICOTROPIN
     Dosage: 40 UNITS, TWICE WKLY
     Route: 065

REACTIONS (8)
  - Injection site erythema [Unknown]
  - Flushing [Unknown]
  - Hyperhidrosis [Unknown]
  - Headache [Unknown]
  - Injection site pruritus [Unknown]
  - Injection site warmth [Unknown]
  - Injection site bruising [Unknown]
  - Feeling hot [Unknown]

NARRATIVE: CASE EVENT DATE: 201412
